FAERS Safety Report 6423730-9 (Version None)
Quarter: 2009Q4

REPORT INFORMATION
  Report Type: 
  Country: None (occurrence: None)
  Receive Date: 20091028
  Receipt Date: 20091012
  Transmission Date: 20100525
  Serious: Yes (Hospitalization)
  Sender: FDA-Public Use
  Company Number: DEP_00301_2009

PATIENT
  Age: 69 Year
  Sex: Male

DRUGS (4)
  1. METFORMIN HCL [Suspect]
     Indication: TYPE 2 DIABETES MELLITUS
     Dosage: (4 G)
  2. ISOSORBIDE DINITRATE [Concomitant]
  3. GLYCAZIDE [Concomitant]
  4. ACETYLSALICYLIC ACID [Concomitant]

REACTIONS (18)
  - BLOOD CREATINE INCREASED [None]
  - BLOOD POTASSIUM DECREASED [None]
  - BLOOD PRESSURE IMMEASURABLE [None]
  - BODY TEMPERATURE DECREASED [None]
  - BRADYCARDIA [None]
  - CARDIO-RESPIRATORY ARREST [None]
  - CONFUSIONAL STATE [None]
  - CONTINUOUS HAEMODIAFILTRATION [None]
  - GLYCOSURIA [None]
  - KETOACIDOSIS [None]
  - LACTIC ACIDOSIS [None]
  - MENTAL STATUS CHANGES [None]
  - NORMOCHROMIC NORMOCYTIC ANAEMIA [None]
  - PNEUMONIA [None]
  - PROCEDURAL COMPLICATION [None]
  - RESPIRATORY RATE INCREASED [None]
  - SHOCK [None]
  - THROMBOCYTOPENIA [None]
